FAERS Safety Report 15374843 (Version 1)
Quarter: 2018Q3

REPORT INFORMATION
  Report Type: Spontaneous
  Country: DE (occurrence: DE)
  Receive Date: 20180912
  Receipt Date: 20180912
  Transmission Date: 20181010
  Serious: Yes (Other)
  Sender: FDA-Public Use
  Company Number: DE-PFIZER INC-2018363051

PATIENT
  Sex: Female
  Weight: 13 kg

DRUGS (3)
  1. JUNIORLAX HUMANUS [Concomitant]
     Indication: PRODUCT USED FOR UNKNOWN INDICATION
     Dosage: 1 SACHET, DAILY
     Route: 065
  2. CYKLOKAPRON [Suspect]
     Active Substance: TRANEXAMIC ACID
     Indication: EPISTAXIS
     Dosage: 0.25 DF, AS NEEDED (1/4 TABLET AS NEEDED)
     Route: 065
  3. ASPIRIN. [Concomitant]
     Active Substance: ASPIRIN
     Indication: PRODUCT USED FOR UNKNOWN INDICATION
     Dosage: 25 MG, 1X/DAY  PER DAY

REACTIONS (4)
  - Loss of consciousness [Recovered/Resolved]
  - Hypotension [Recovered/Resolved]
  - Oxygen saturation decreased [Recovered/Resolved]
  - Cyanosis [Recovered/Resolved]
